FAERS Safety Report 10258557 (Version 3)
Quarter: 2014Q3

REPORT INFORMATION
  Report Type: Spontaneous
  Country: GB (occurrence: GB)
  Receive Date: 20140625
  Receipt Date: 20140916
  Transmission Date: 20150326
  Serious: Yes (Death, Other)
  Sender: FDA-Public Use
  Company Number: PHFR2014GB004444

PATIENT
  Age: 66 Year
  Sex: Male

DRUGS (3)
  1. CLOZARIL [Suspect]
     Active Substance: CLOZAPINE
     Indication: SCHIZOPHRENIA
     Dosage: 75 MG, QD, ONCE A DAILY (OD)
     Route: 048
     Dates: start: 20140309
  2. CLOZARIL [Suspect]
     Active Substance: CLOZAPINE
     Dosage: UKN
     Route: 048
     Dates: start: 20140321
  3. SERIALISE [Concomitant]
     Indication: DEPRESSION
     Dosage: 50 MG, QD, ONCE A DAILY (OD)
     Route: 048
     Dates: start: 20140301

REACTIONS (7)
  - Sudden death [Fatal]
  - Deep vein thrombosis [Unknown]
  - Neutrophil count increased [Unknown]
  - Mobility decreased [Fatal]
  - Pulmonary embolism [Fatal]
  - Parkinson^s disease [Fatal]
  - White blood cell count increased [Unknown]

NARRATIVE: CASE EVENT DATE: 20140620
